FAERS Safety Report 13561634 (Version 2)
Quarter: 2017Q3

REPORT INFORMATION
  Report Type: Report from Study
  Country: US (occurrence: US)
  Receive Date: 20170518
  Receipt Date: 20170801
  Transmission Date: 20171127
  Serious: Yes (Death, Hospitalization, Other)
  Sender: FDA-Public Use
  Company Number: US-ACTELION-A-US2017-150887

PATIENT
  Age: 70 Year
  Sex: Male
  Weight: 81.63 kg

DRUGS (2)
  1. VELETRI [Suspect]
     Active Substance: EPOPROSTENOL
     Indication: PULMONARY ARTERIAL HYPERTENSION
     Dosage: 40 NG/KG, PER MIN
     Route: 042
  2. COUMADIN [Concomitant]
     Active Substance: WARFARIN SODIUM

REACTIONS (8)
  - Cardiac failure [Fatal]
  - Laceration [Unknown]
  - Device related sepsis [Fatal]
  - Fall [Unknown]
  - Skin infection [Unknown]
  - Neuropathy peripheral [Unknown]
  - Hypotension [Unknown]
  - Back injury [Unknown]

NARRATIVE: CASE EVENT DATE: 20170511
